FAERS Safety Report 5826556-X (Version None)
Quarter: 2008Q3

REPORT INFORMATION
  Report Type: 
  Country: None (occurrence: None)
  Receive Date: 20080729
  Receipt Date: 20080721
  Transmission Date: 20090109
  Serious: Yes (Hospitalization)
  Sender: FDA-Public Use
  Company Number: US-ELI_LILLY_AND_COMPANY-US200807004125

PATIENT
  Sex: Female

DRUGS (3)
  1. HUMULIN R [Suspect]
  2. NOVOLIN [Concomitant]
     Route: 042
  3. NOVOLOG [Concomitant]
     Route: 042

REACTIONS (4)
  - BLOOD GLUCOSE DECREASED [None]
  - BLOOD GLUCOSE FLUCTUATION [None]
  - CARDIAC FAILURE CONGESTIVE [None]
  - OEDEMA [None]
